FAERS Safety Report 16521683 (Version 4)
Quarter: 2021Q3

REPORT INFORMATION
  Report Type: Spontaneous
  Country: DE (occurrence: DE)
  Receive Date: 20190703
  Receipt Date: 20210815
  Transmission Date: 20211014
  Serious: Yes (Other)
  Sender: FDA-Public Use
  Company Number: DE-AUROBINDO-AUR-APL-2019-037087

PATIENT
  Age: 81 Year
  Sex: Male

DRUGS (4)
  1. VESIKUR [Suspect]
     Active Substance: SOLIFENACIN SUCCINATE
     Indication: PROSTATIC DISORDER
     Dosage: 5 MILLIGRAM, ONCE A DAY
     Route: 048
     Dates: start: 20190602
  2. SOLIFENACIN [Suspect]
     Active Substance: SOLIFENACIN
     Indication: NOCTURIA
     Dosage: 5 MILLIGRAM, ONCE A DAY
     Route: 048
     Dates: start: 20190602
  3. TAMSULOSIN [Suspect]
     Active Substance: TAMSULOSIN
     Indication: PRODUCT USED FOR UNKNOWN INDICATION
     Dosage: 0.4 MILLIGRAM
     Route: 048
  4. VESIKUR [Suspect]
     Active Substance: SOLIFENACIN SUCCINATE
     Indication: NOCTURIA

REACTIONS (5)
  - Urinary retention [Unknown]
  - Pollakiuria [Unknown]
  - Product use in unapproved indication [Unknown]
  - Polyuria [Unknown]
  - Bladder discomfort [Unknown]

NARRATIVE: CASE EVENT DATE: 20190602
